FAERS Safety Report 18304104 (Version 1)
Quarter: 2020Q3

REPORT INFORMATION
  Report Type: Spontaneous
  Country: US (occurrence: US)
  Receive Date: 20200924
  Receipt Date: 20200924
  Transmission Date: 20201103
  Serious: No
  Sender: FDA-Public Use
  Company Number: US-BAUSCH-BL-2020-025776

PATIENT
  Age: 76 Year
  Sex: Female
  Weight: 74.91 kg

DRUGS (2)
  1. LOSARTAN. [Concomitant]
     Active Substance: LOSARTAN
     Indication: PRODUCT USED FOR UNKNOWN INDICATION
  2. DILTIAZEM HCL CD CAPSULES [Suspect]
     Active Substance: DILTIAZEM HYDROCHLORIDE
     Indication: HYPERTENSION
     Dosage: ABOUT 3 MONTHS AGO (STARTED) AND ABOUT 4 DAYS AGO FROM TIME OF REPORT SSTOPPED.
     Route: 048
     Dates: start: 2020, end: 2020

REACTIONS (1)
  - Urticaria [Recovered/Resolved]

NARRATIVE: CASE EVENT DATE: 2020
